FAERS Safety Report 24349781 (Version 1)
Quarter: 2024Q3

REPORT INFORMATION
  Report Type: Spontaneous
  Country: CN (occurrence: CN)
  Receive Date: 20240923
  Receipt Date: 20240923
  Transmission Date: 20241017
  Serious: No
  Sender: ROCHE
  Company Number: CN-ROCHE-3487760

PATIENT
  Age: 28 Year
  Sex: Male

DRUGS (7)
  1. TRASTUZUMAB [Suspect]
     Active Substance: TRASTUZUMAB
     Indication: Small intestine adenocarcinoma
     Dosage: 6 MG/KG LOADING DOSE
     Route: 042
     Dates: start: 202012
  2. TRASTUZUMAB [Suspect]
     Active Substance: TRASTUZUMAB
     Dosage: ON DAY 1
     Route: 042
  3. FLUOROURACIL SODIUM [Suspect]
     Active Substance: FLUOROURACIL SODIUM
     Indication: Small intestine adenocarcinoma
     Dosage: 400 MG/M2 AND THEN A CONTINUOUS
     Route: 040
     Dates: start: 202012
  4. FLUOROURACIL SODIUM [Suspect]
     Active Substance: FLUOROURACIL SODIUM
     Dosage: 46 H INFUSION OF 2,400 MG/M2 ON DAY 2
     Route: 042
  5. LEUCOVORIN [Suspect]
     Active Substance: LEUCOVORIN\LEUCOVORIN CALCIUM
     Indication: Small intestine adenocarcinoma
     Dosage: 400 MG/M2 ON DAY 2
     Route: 042
     Dates: start: 202012
  6. OXALIPLATIN [Suspect]
     Active Substance: OXALIPLATIN
     Indication: Small intestine adenocarcinoma
     Dosage: 85 MG/M2 ON DAY 2) EVERY 2
     Route: 042
     Dates: start: 202012
  7. IRINOTECAN [Suspect]
     Active Substance: IRINOTECAN
     Indication: Small intestine adenocarcinoma
     Dosage: 180 MG/M2
     Route: 042
     Dates: start: 202108

REACTIONS (3)
  - Disease progression [Unknown]
  - Intestinal obstruction [Unknown]
  - Sinus bradycardia [Unknown]

NARRATIVE: CASE EVENT DATE: 20211201
